FAERS Safety Report 16514023 (Version 1)
Quarter: 2019Q3

REPORT INFORMATION
  Report Type: Spontaneous
  Country: US (occurrence: US)
  Receive Date: 20190701
  Receipt Date: 20190701
  Transmission Date: 20191004
  Serious: Yes (Hospitalization)
  Sender: FDA-Public Use
  Company Number: US-STASON PHARMACEUTICALS, INC.-2070157

PATIENT
  Age: 3 Year
  Sex: Female
  Weight: 13.5 kg

DRUGS (1)
  1. MERCAPTOPURINE. [Suspect]
     Active Substance: MERCAPTOPURINE

REACTIONS (5)
  - Vomiting [None]
  - Pyrexia [None]
  - Nausea [None]
  - Abdominal pain [None]
  - Febrile neutropenia [None]
